FAERS Safety Report 20556752 (Version 1)
Quarter: 2022Q1

REPORT INFORMATION
  Report Type: Spontaneous
  Country: GB (occurrence: GB)
  Receive Date: 20220307
  Receipt Date: 20220307
  Transmission Date: 20220423
  Serious: Yes (Other)
  Sender: FDA-Public Use
  Company Number: GB-MHRA-MED-202202221518383060-65KQZ

PATIENT
  Sex: Female
  Weight: 64 kg

DRUGS (3)
  1. MIRTAZAPINE [Suspect]
     Active Substance: MIRTAZAPINE
     Indication: Product used for unknown indication
     Dosage: 30 MILLIGRAM, ONCE A DAY (TO BE TAKEN AT NIGHT)
     Route: 065
  2. OMEPRAZOLE [Concomitant]
     Active Substance: OMEPRAZOLE
     Indication: Gastrooesophageal reflux disease
     Dosage: UNK
     Route: 065
  3. Rigevidon [Concomitant]
     Indication: Contraception
     Dosage: UNK
     Route: 065

REACTIONS (1)
  - Abnormal weight gain [Not Recovered/Not Resolved]
